FAERS Safety Report 20063794 (Version 1)
Quarter: 2021Q4

REPORT INFORMATION
  Report Type: Spontaneous
  Country: US (occurrence: None)
  Receive Date: 20211112
  Receipt Date: 20211112
  Transmission Date: 20220304
  Serious: Yes (Other)
  Sender: FDA-Public Use
  Company Number: None

PATIENT
  Age: 81 Year
  Sex: Female
  Weight: 51.25 kg

DRUGS (4)
  1. KEYTRUDA [Suspect]
     Active Substance: PEMBROLIZUMAB
     Indication: Non-small cell lung cancer
     Dosage: OTHER FREQUENCY : EVERY 3 WEEKS;?
     Route: 041
     Dates: start: 20211007, end: 20211110
  2. CARBOPLATIN [Concomitant]
     Active Substance: CARBOPLATIN
     Dates: start: 20211007, end: 20211104
  3. PACLITAXEL [Concomitant]
     Active Substance: PACLITAXEL
     Dates: start: 20211007, end: 20211104
  4. XGEVA [Concomitant]
     Active Substance: DENOSUMAB
     Dates: start: 20211007, end: 20211104

REACTIONS (2)
  - Toxic epidermal necrolysis [None]
  - Stevens-Johnson syndrome [None]

NARRATIVE: CASE EVENT DATE: 20211111
